FAERS Safety Report 19216188 (Version 1)
Quarter: 2021Q2

REPORT INFORMATION
  Report Type: Spontaneous
  Country: US (occurrence: US)
  Receive Date: 20210505
  Receipt Date: 20210505
  Transmission Date: 20210717
  Serious: Yes (Hospitalization)
  Sender: FDA-Public Use
  Company Number: None

PATIENT
  Sex: Male
  Weight: 86.5 kg

DRUGS (19)
  1. ALBUTEROL. [Concomitant]
     Active Substance: ALBUTEROL
  2. CETIRIZINE [Concomitant]
     Active Substance: CETIRIZINE HYDROCHLORIDE
  3. MONTELUKAST [Concomitant]
     Active Substance: MONTELUKAST SODIUM
  4. RIVAROXABAN [Concomitant]
     Active Substance: RIVAROXABAN
  5. ERBITUX [Suspect]
     Active Substance: CETUXIMAB
     Dates: end: 20210420
  6. FINASTERIDE. [Concomitant]
     Active Substance: FINASTERIDE
  7. FUROSEMIDE. [Concomitant]
     Active Substance: FUROSEMIDE
  8. OMEPRAZOLE. [Concomitant]
     Active Substance: OMEPRAZOLE
  9. ROFLUMISLAST [Concomitant]
  10. VITAMIN D3 [Concomitant]
     Active Substance: CHOLECALCIFEROL
  11. METOPROLOL TARTRATE. [Concomitant]
     Active Substance: METOPROLOL TARTRATE
  12. FERROUS SULFATE. [Concomitant]
     Active Substance: FERROUS SULFATE
  13. PREDNISONE. [Concomitant]
     Active Substance: PREDNISONE
  14. ARNLODIPINE?BENAZEPRIL [Concomitant]
  15. ATORVASTATIN [Concomitant]
     Active Substance: ATORVASTATIN
  16. ASPIRIN. [Concomitant]
     Active Substance: ASPIRIN
  17. SILDENAFIL. [Concomitant]
     Active Substance: SILDENAFIL
  18. TRAMADOL. [Concomitant]
     Active Substance: TRAMADOL
  19. FLUTICASONE PROPIONSALMETEROL [Concomitant]

REACTIONS (5)
  - Thrombosis [None]
  - Epistaxis [None]
  - Oropharyngeal neoplasm [None]
  - Haematemesis [None]
  - Tumour haemorrhage [None]

NARRATIVE: CASE EVENT DATE: 20210421
